FAERS Safety Report 9665256 (Version 2)
Quarter: 2014Q1

REPORT INFORMATION
  Report Type: Spontaneous
  Country: FR (occurrence: FR)
  Receive Date: 20131101
  Receipt Date: 20140124
  Transmission Date: 20141002
  Serious: Yes (Other)
  Sender: FDA-Public Use
  Company Number: PHHY2013FR123787

PATIENT
  Age: 43 Year
  Sex: Female
  Weight: 52 kg

DRUGS (3)
  1. GILENYA [Suspect]
     Indication: MULTIPLE SCLEROSIS
     Dosage: 0.5 MG, QD
     Route: 048
     Dates: start: 20130801
  2. GILENYA [Suspect]
     Dosage: 25 DF, QD
     Route: 048
     Dates: start: 20131025, end: 20131025
  3. GILENYA [Suspect]
     Dosage: 0.5 MG, QD
     Route: 048

REACTIONS (2)
  - Suicide attempt [Recovered/Resolved]
  - Intentional overdose [Recovered/Resolved]
